FAERS Safety Report 15350547 (Version 4)
Quarter: 2018Q4

REPORT INFORMATION
  Report Type: Spontaneous
  Country: JP (occurrence: JP)
  Receive Date: 20180905
  Receipt Date: 20181102
  Transmission Date: 20190204
  Serious: Yes (Hospitalization, Other)
  Sender: FDA-Public Use
  Company Number: JP-ORION CORPORATION ORION PHARMA-ENT 2018-0080

PATIENT
  Age: 60 Year
  Sex: Male

DRUGS (12)
  1. STALEVO [Suspect]
     Active Substance: CARBIDOPA\ENTACAPONE\LEVODOPA
     Dosage: STRENGTH- L100, 600-700 MG
     Route: 048
  2. TRERIEF [Concomitant]
     Active Substance: ZONISAMIDE
     Route: 065
  3. STALEVO [Suspect]
     Active Substance: CARBIDOPA\ENTACAPONE\LEVODOPA
     Dosage: 7QD, STRENGTH: 100/10/100 MG
     Route: 048
  4. STALEVO [Suspect]
     Active Substance: CARBIDOPA\ENTACAPONE\LEVODOPA
     Indication: PARKINSON^S DISEASE
     Dosage: 5QD, STRENGTH: 100/10/100 MG
     Route: 048
  5. ZONISAMIDE. [Concomitant]
     Active Substance: ZONISAMIDE
     Route: 065
  6. AMANTADINE. [Concomitant]
     Active Substance: AMANTADINE HYDROCHLORIDE
     Route: 065
  7. COMTAN [Suspect]
     Active Substance: ENTACAPONE
     Indication: PARKINSON^S DISEASE
     Route: 048
  8. STALEVO [Suspect]
     Active Substance: CARBIDOPA\ENTACAPONE\LEVODOPA
     Dosage: 6QD, STRENGTH: 100/10/100 MG
     Route: 048
  9. PRAMIPEXOLE. [Concomitant]
     Active Substance: PRAMIPEXOLE
     Route: 065
  10. CARBIDOPA + L-DOPA [Concomitant]
     Active Substance: CARBIDOPA\LEVODOPA
     Route: 065
  11. AMANTADINE. [Concomitant]
     Active Substance: AMANTADINE HYDROCHLORIDE
     Route: 065
  12. TRIHEXYPHENIDYL [Concomitant]
     Active Substance: TRIHEXYPHENIDYL
     Route: 065

REACTIONS (6)
  - Feeling abnormal [Recovering/Resolving]
  - Parkinson^s disease [Not Recovered/Not Resolved]
  - Contusion [Recovering/Resolving]
  - Road traffic accident [Recovering/Resolving]
  - Dyskinesia [Not Recovered/Not Resolved]
  - Therapeutic response shortened [Not Recovered/Not Resolved]
